FAERS Safety Report 4852695-6 (Version None)
Quarter: 2005Q4

REPORT INFORMATION
  Report Type: 
  Country: None (occurrence: None)
  Receive Date: 20051213
  Receipt Date: 20041129
  Transmission Date: 20060501
  Serious: Yes (Hospitalization, Disabling)
  Sender: FDA-Public Use
  Company Number: US-MERCK-0411USA04244

PATIENT
  Age: 45 Year
  Sex: Female
  Weight: 100 kg

DRUGS (4)
  1. VIOXX [Suspect]
     Indication: PAIN
     Route: 048
     Dates: start: 20010101, end: 20030601
  2. VIOXX [Suspect]
     Indication: ARTHRITIS
     Route: 048
     Dates: start: 20010101, end: 20030601
  3. TYLENOL [Concomitant]
     Route: 065
  4. BEXTRA [Concomitant]
     Route: 065

REACTIONS (5)
  - ARTERIAL DISORDER [None]
  - ARTHROPATHY [None]
  - CEREBROVASCULAR ACCIDENT [None]
  - COLONOSCOPY [None]
  - DEPRESSION [None]
